FAERS Safety Report 12073194 (Version 1)
Quarter: 2016Q1

REPORT INFORMATION
  Report Type: Spontaneous
  Country: DK (occurrence: DE)
  Receive Date: 20160212
  Receipt Date: 20160212
  Transmission Date: 20160526
  Serious: Yes (Congenital Anomaly, Other)
  Sender: FDA-Public Use
  Company Number: DE-FRI-1000082466

PATIENT
  Age: 1 Day
  Sex: Male
  Weight: 2.57 kg

DRUGS (6)
  1. TAVOR (LORAZEPAM) [Suspect]
     Active Substance: LORAZEPAM
     Indication: ANXIETY DISORDER
     Route: 064
     Dates: start: 20140918, end: 20150615
  2. LYRICA [Suspect]
     Active Substance: PREGABALIN
     Indication: ANXIETY DISORDER
     Dosage: 300 MG
     Route: 064
  3. FEMAFORM NATAL [Suspect]
     Active Substance: MINERALS\VITAMINS
     Indication: PROPHYLAXIS OF NEURAL TUBE DEFECT
     Route: 065
  4. ASPIRIN. [Suspect]
     Active Substance: ASPIRIN
     Indication: ANXIETY DISORDER
     Dosage: 240 MG
     Route: 064
     Dates: start: 20140918, end: 20150615
  5. ESCITALOPRAM [Suspect]
     Active Substance: ESCITALOPRAM OXALATE
     Indication: DEPRESSION
     Dosage: 10 MG
     Route: 064
     Dates: start: 20140918, end: 20150615
  6. METAMIZOL [Suspect]
     Active Substance: METAMIZOLE SODIUM
     Indication: HEADACHE
     Dosage: 500 MG
     Route: 064
     Dates: start: 20140918, end: 20150615

REACTIONS (3)
  - Foetal exposure during pregnancy [Unknown]
  - Small for dates baby [Not Recovered/Not Resolved]
  - Hypospadias [Not Recovered/Not Resolved]

NARRATIVE: CASE EVENT DATE: 20150616
